FAERS Safety Report 7901829-5 (Version None)
Quarter: 2011Q4

REPORT INFORMATION
  Report Type: 
  Country: None (occurrence: None)
  Receive Date: 20111108
  Receipt Date: 20111101
  Transmission Date: 20120403
  Serious: Yes (Disabling, Other)
  Sender: FDA-Public Use
  Company Number: US-BAYER-200817477NA

PATIENT
  Age: 73 Year
  Sex: Male

DRUGS (37)
  1. MULTIHANCE [Suspect]
     Indication: ANGIOGRAM
  2. PROHANCE [Suspect]
     Indication: ANGIOGRAM
  3. PROCRIT [Concomitant]
  4. COUMADIN [Concomitant]
     Dosage: 5 MG
     Route: 048
  5. PLAVIX [Concomitant]
     Dosage: 75MG/DAILY
     Route: 048
  6. GADOLINIUM IN UNSPECIFIED DRUG [Suspect]
     Indication: NUCLEAR MAGNETIC RESONANCE IMAGING
     Dosage: UNK
     Dates: start: 20000526
  7. MULTIHANCE [Suspect]
     Indication: NUCLEAR MAGNETIC RESONANCE IMAGING
  8. ACTOS [Concomitant]
     Dosage: 15MG
     Route: 048
  9. ZOCOR [Concomitant]
     Dosage: 40 MG
     Route: 048
  10. RENAGEL [Concomitant]
     Dosage: 800MG/4 TABS 3 TIMES PER DAY
     Route: 048
  11. GLIPIZIDE [Concomitant]
     Dosage: 5 MG
     Route: 048
  12. RAMIPRIL [Concomitant]
     Dosage: 2.5MG
     Route: 048
  13. GADOLINIUM IN UNSPECIFIED DRUG [Suspect]
     Dosage: 20CC INJECTED
     Dates: start: 20020715
  14. GADOLINIUM IN UNSPECIFIED DRUG [Suspect]
     Dosage: 30CC
     Dates: start: 20031120
  15. OPTIMARK [Suspect]
     Indication: NUCLEAR MAGNETIC RESONANCE IMAGING
  16. PROCRIT [Concomitant]
  17. SINGULAIR [Concomitant]
     Dosage: 10 MG
     Route: 048
  18. ALLEGRA [Concomitant]
     Dosage: 60 MG
     Route: 048
  19. SERTRALINE HYDROCHLORIDE [Concomitant]
  20. GADOLINIUM IN UNSPECIFIED DRUG [Suspect]
     Dosage: UNK
     Dates: start: 20020718
  21. MAGNEVIST [Suspect]
     Indication: NUCLEAR MAGNETIC RESONANCE IMAGING
  22. OMNISCAN [Suspect]
     Indication: ANGIOGRAM
  23. FLONASE [Concomitant]
     Dosage: TWICE A DAY
     Route: 045
  24. VITAPLEX [Concomitant]
  25. GADOLINIUM IN UNSPECIFIED DRUG [Suspect]
     Indication: ANGIOPLASTY
     Dosage: UNK
     Dates: start: 20040621
  26. MAGNEVIST [Suspect]
     Indication: ANGIOGRAM
  27. PROHANCE [Suspect]
     Indication: NUCLEAR MAGNETIC RESONANCE IMAGING
  28. IRON [CITRIC ACID,FERROUS SULFATE] [Concomitant]
     Indication: IRON DEFICIENCY
     Dosage: UNK
     Dates: start: 20040101
  29. FUROSEMIDE [Concomitant]
     Dosage: 80MG
     Route: 048
  30. OPTIMARK [Suspect]
     Indication: ANGIOGRAM
  31. OMNISCAN [Suspect]
     Indication: NUCLEAR MAGNETIC RESONANCE IMAGING
     Dosage: 20CC
     Dates: start: 20020715, end: 20020715
  32. VALSARTAN [Concomitant]
     Dosage: 80MG
     Route: 048
  33. METOPROLOL [Concomitant]
     Dosage: 50MG
     Route: 048
  34. GADOLINIUM IN UNSPECIFIED DRUG [Suspect]
     Indication: NUCLEAR MAGNETIC RESONANCE IMAGING BRAIN
     Dosage: UNK
     Dates: start: 19990710, end: 19990710
  35. GADOLINIUM IN UNSPECIFIED DRUG [Suspect]
     Indication: ANGIOGRAM
     Dosage: UNK
     Dates: start: 20010514
  36. GADOLINIUM IN UNSPECIFIED DRUG [Suspect]
     Dosage: UNK
     Dates: start: 20041106
  37. GADOLINIUM IN UNSPECIFIED DRUG [Suspect]
     Indication: IMAGING PROCEDURE

REACTIONS (11)
  - PAIN [None]
  - SKIN TIGHTNESS [None]
  - ANXIETY [None]
  - JOINT CONTRACTURE [None]
  - NEPHROGENIC SYSTEMIC FIBROSIS [None]
  - INJURY [None]
  - JOINT RANGE OF MOTION DECREASED [None]
  - SKIN INDURATION [None]
  - MOBILITY DECREASED [None]
  - EMOTIONAL DISTRESS [None]
  - ANHEDONIA [None]
